FAERS Safety Report 6931352-6 (Version None)
Quarter: 2010Q3

REPORT INFORMATION
  Report Type: 
  Country: None (occurrence: None)
  Receive Date: 20100819
  Receipt Date: 20100805
  Transmission Date: 20110219
  Serious: Yes (Other)
  Sender: FDA-Public Use
  Company Number: US-RB-012848-10

PATIENT
  Sex: Female
  Weight: 54.9 kg

DRUGS (7)
  1. MUCINEX DM [Suspect]
     Route: 048
     Dates: start: 20100714
  2. MUCINEX DM [Suspect]
     Dosage: PATIENT TOOK 1 PILL EVERY 12 HOURS FOR 2 DAYS.
     Route: 048
     Dates: start: 20100712
  3. MUCINEX DM [Suspect]
     Indication: MALAISE
     Dosage: PATIENT TOOK 1 PILL EVERY 12 HOURS FOR 2 DAYS.
     Route: 048
     Dates: start: 20100714
  4. MUCINEX DM [Suspect]
     Indication: FATIGUE
     Dosage: PATIENT TOOK 1 PILL EVERY 12 HOURS FOR 2 DAYS.
     Route: 048
     Dates: start: 20100714
  5. ADVAIR DISKUS 100/50 [Concomitant]
     Dosage: ONE INHALATION EVERY 12 HOURS
     Route: 055
  6. PROVENTIL [Concomitant]
     Dosage: TAKEN WHEN NEEDED.
  7. YASMIN [Concomitant]

REACTIONS (4)
  - DIZZINESS [None]
  - LOSS OF CONSCIOUSNESS [None]
  - MALAISE [None]
  - RESPIRATORY TRACT INFECTION [None]
